FAERS Safety Report 21439898 (Version 1)
Quarter: 2022Q4

REPORT INFORMATION
  Report Type: Other
  Country: GB (occurrence: GB)
  Receive Date: 20221011
  Receipt Date: 20221011
  Transmission Date: 20230112
  Serious: Yes (Other)
  Sender: FDA-Public Use
  Company Number: GB-CELLTRION INC.-2022GB016306

PATIENT

DRUGS (2)
  1. RITUXIMAB [Suspect]
     Active Substance: RITUXIMAB
     Indication: Diffuse large B-cell lymphoma
     Dosage: EVERY 3 WEEKS  (1/MAR/2022, 22/MAR/2022, 12/APR/2022, 3/MAR/2022, 4/JUN/2022 RECENT DOSE WAS ADMINIS
     Dates: start: 20220208
  2. POLIVY [Suspect]
     Active Substance: POLATUZUMAB VEDOTIN-PIIQ
     Indication: Diffuse large B-cell lymphoma
     Dosage: UNK

REACTIONS (8)
  - Arteriosclerosis coronary artery [Unknown]
  - Glycosylated haemoglobin increased [Unknown]
  - Ejection fraction decreased [Unknown]
  - Blood cholesterol increased [Unknown]
  - Night sweats [Unknown]
  - Abdominal pain upper [Unknown]
  - Hypertension [Unknown]
  - Off label use [Unknown]
